FAERS Safety Report 9738740 (Version 1)
Quarter: 2013Q4

REPORT INFORMATION
  Report Type: Spontaneous
  Country: GB (occurrence: GB)
  Receive Date: 20131209
  Receipt Date: 20131209
  Transmission Date: 20140711
  Serious: Yes (Other)
  Sender: FDA-Public Use
  Company Number: GB-ACCORD-020529

PATIENT
  Age: 50 Year
  Sex: Female
  Weight: 63.5 kg

DRUGS (9)
  1. MONTELUKAST [Suspect]
     Indication: RESPIRATORY DISORDER
     Dosage: 10 MG, QD
     Route: 048
     Dates: start: 20131016, end: 20131103
  2. ALBUTEROL [Concomitant]
  3. TIBOLONE [Concomitant]
  4. PREGABALIN [Concomitant]
  5. METFORMIN [Concomitant]
  6. DOXYCYCLINE [Concomitant]
  7. AMITRIPTYLINE HYDROCHLORIDE [Concomitant]
  8. ZOMORPH [Concomitant]
  9. PREDNISOLONE [Concomitant]

REACTIONS (4)
  - Stress [Unknown]
  - Muscle spasms [Not Recovered/Not Resolved]
  - Nightmare [Not Recovered/Not Resolved]
  - Sleep disorder [Unknown]
